FAERS Safety Report 12084001 (Version 1)
Quarter: 2016Q1

REPORT INFORMATION
  Report Type: Spontaneous
  Country: CN (occurrence: CN)
  Receive Date: 20160217
  Receipt Date: 20160217
  Transmission Date: 20160526
  Serious: Yes (Hospitalization)
  Sender: FDA-Public Use
  Company Number: CN-INFO-000048

PATIENT
  Age: 64 Year
  Sex: Female

DRUGS (2)
  1. LEVOFLOXACIN. [Suspect]
     Active Substance: LEVOFLOXACIN
     Route: 065
  2. AMOXICILLIN SODIUM/SULBACTAM SODIUM [Concomitant]
     Active Substance: AMPICILLIN SODIUM\SULBACTAM SODIUM
     Route: 065

REACTIONS (4)
  - Acute kidney injury [Recovered/Resolved]
  - Crystal nephropathy [Recovered/Resolved]
  - Renal tubular necrosis [None]
  - Haemodialysis [None]
